FAERS Safety Report 6742682-5 (Version None)
Quarter: 2010Q2

REPORT INFORMATION
  Report Type: 
  Country: None (occurrence: None)
  Receive Date: 20100526
  Receipt Date: 20090911
  Transmission Date: 20101027
  Serious: No
  Sender: FDA-Public Use
  Company Number: US-ABBOTT-09P-163-0597662-00

PATIENT
  Sex: Male
  Weight: 70.37 kg

DRUGS (11)
  1. ZEMPLAR [Suspect]
     Indication: HYPERPARATHYROIDISM
     Route: 065
     Dates: start: 20090701, end: 20090909
  2. ZEMPLAR [Suspect]
     Route: 065
     Dates: start: 20090910
  3. NASACORT AQ [Concomitant]
     Indication: HYPERSENSITIVITY
     Dosage: 2 SPRAYS IN EACH NOSTRIL DAILY
  4. ALBUTEROL [Concomitant]
     Indication: ASTHMA
     Route: 055
  5. FORADIL [Concomitant]
     Indication: ASTHMA
     Route: 055
  6. ZOCOR [Concomitant]
     Indication: BLOOD CHOLESTEROL INCREASED
     Route: 048
  7. PEPCID [Concomitant]
     Indication: DRUG USE FOR UNKNOWN INDICATION
     Route: 048
  8. COLCHICINE [Concomitant]
     Indication: GOUT
     Route: 048
  9. KLONOPIN [Concomitant]
     Indication: ANXIETY
     Route: 048
  10. DESYRYL [Concomitant]
     Indication: INSOMNIA
     Route: 048
  11. ROCALTROL [Concomitant]
     Indication: DRUG USE FOR UNKNOWN INDICATION

REACTIONS (3)
  - ARTERIOVENOUS FISTULA SITE COMPLICATION [None]
  - DYSGEUSIA [None]
  - NAUSEA [None]
